FAERS Safety Report 5267024-6 (Version None)
Quarter: 2007Q1

REPORT INFORMATION
  Report Type: 
  Country: None (occurrence: None)
  Receive Date: 20070316
  Receipt Date: 20070307
  Transmission Date: 20070707
  Serious: Yes (Hospitalization)
  Sender: FDA-Public Use
  Company Number: GR-JNJFOC-20070301487

PATIENT
  Age: 46 Year
  Sex: Male

DRUGS (7)
  1. REMICADE [Suspect]
     Route: 042
  2. REMICADE [Suspect]
     Route: 042
  3. REMICADE [Suspect]
     Route: 042
  4. REMICADE [Suspect]
     Route: 042
  5. REMICADE [Suspect]
     Route: 042
  6. REMICADE [Suspect]
     Indication: ANKYLOSING SPONDYLITIS
     Route: 042
  7. FENISTIL [Concomitant]
     Indication: PREMEDICATION
     Route: 042

REACTIONS (5)
  - BLOOD PRESSURE DECREASED [None]
  - DYSPHORIA [None]
  - HYPERCHLORHYDRIA [None]
  - NAUSEA [None]
  - VERTIGO [None]
